FAERS Safety Report 20023241 (Version 5)
Quarter: 2022Q3

REPORT INFORMATION
  Report Type: Spontaneous
  Country: JP (occurrence: JP)
  Receive Date: 20211102
  Receipt Date: 20220714
  Transmission Date: 20221027
  Serious: Yes (Other)
  Sender: FDA-Public Use
  Company Number: JP-GLAXOSMITHKLINE-JP2021JPN224358

PATIENT

DRUGS (5)
  1. FLUTICASONE FUROATE\VILANTEROL TRIFENATATE [Suspect]
     Active Substance: FLUTICASONE FUROATE\VILANTEROL TRIFENATATE
     Indication: Asthma
     Dosage: 200 UG, QD
     Route: 055
     Dates: start: 20210820, end: 20211015
  2. FLUTICASONE FUROATE\VILANTEROL TRIFENATATE [Suspect]
     Active Substance: FLUTICASONE FUROATE\VILANTEROL TRIFENATATE
     Indication: Cough
  3. CANDESARTAN CILEXETIL [Concomitant]
     Active Substance: CANDESARTAN CILEXETIL
     Indication: Hypertension
     Dosage: 4 MG/DAY
     Route: 048
  4. LIPITOR TABLETS [Concomitant]
     Indication: Hypercholesterolaemia
     Dosage: 5 MG/DAY
     Route: 048
  5. BAYASPIRIN TABLETS [Concomitant]
     Dosage: 100 MG/DAY
     Route: 048

REACTIONS (1)
  - Glaucoma [Recovered/Resolved]
